FAERS Safety Report 7494835-9 (Version None)
Quarter: 2011Q2

REPORT INFORMATION
  Report Type: 
  Country: None (occurrence: None)
  Receive Date: 20110520
  Receipt Date: 20110516
  Transmission Date: 20111010
  Serious: Yes (Other)
  Sender: FDA-Public Use
  Company Number: B0718780A

PATIENT
  Sex: Female

DRUGS (5)
  1. KEPPRA [Concomitant]
     Dosage: 1500MG TWICE PER DAY
  2. UNSPECIFIED DRUGS [Concomitant]
  3. LAMICTAL [Concomitant]
     Dates: start: 20090101
  4. LAMICTAL [Suspect]
     Dosage: 100MG TWICE PER DAY
     Route: 065
     Dates: start: 20110501
  5. TOPAMAX [Concomitant]
     Dosage: 100MG TWICE PER DAY

REACTIONS (7)
  - DYSARTHRIA [None]
  - NAUSEA [None]
  - PETIT MAL EPILEPSY [None]
  - SOMNOLENCE [None]
  - SPEECH DISORDER [None]
  - PRODUCT SUBSTITUTION ISSUE [None]
  - DRUG INEFFECTIVE [None]
